FAERS Safety Report 4837740-6 (Version None)
Quarter: 2005Q4

REPORT INFORMATION
  Report Type: 
  Country: None (occurrence: None)
  Receive Date: 20051128
  Receipt Date: 20051004
  Transmission Date: 20060501
  Serious: Yes (Hospitalization, Other)
  Sender: FDA-Public Use
  Company Number: US-MERCK-0510USA02411

PATIENT
  Age: 40 Year
  Sex: Female
  Weight: 74 kg

DRUGS (2)
  1. VIOXX [Suspect]
     Indication: ARTHRALGIA
     Route: 048
     Dates: start: 19990101, end: 20000101
  2. VIOXX [Suspect]
     Indication: HEADACHE
     Route: 048
     Dates: start: 19990101, end: 20000101

REACTIONS (8)
  - ANGINA PECTORIS [None]
  - CHEST PAIN [None]
  - DYSPNOEA [None]
  - GALLBLADDER DISORDER [None]
  - HYPERTENSION [None]
  - INTESTINAL FUNCTIONAL DISORDER [None]
  - MYOCARDIAL INFARCTION [None]
  - PALPITATIONS [None]
